FAERS Safety Report 8589213-5 (Version None)
Quarter: 2012Q3

REPORT INFORMATION
  Report Type: 
  Country: None (occurrence: None)
  Receive Date: 20120813
  Receipt Date: 20120810
  Transmission Date: 20120928
  Serious: Yes (Other)
  Sender: FDA-Public Use
  Company Number: CA-JNJFOC-20120614721

PATIENT
  Sex: Female
  Weight: 91.63 kg

DRUGS (9)
  1. TRAMADOL HYDROCHLORIDE/ACETAMINOPHEN [Suspect]
     Dosage: 325/37.5 MG 4-6 HOUR AS NEEDED
     Route: 048
     Dates: start: 20110224, end: 20120201
  2. TRAMADOL HYDROCHLORIDE/ACETAMINOPHEN [Suspect]
     Indication: ARTHRALGIA
     Dosage: EVERY 4 TO 6 HOURS AS NECESSARY (PRN)
     Route: 048
  3. CHLORTHALIDONE [Concomitant]
     Indication: BLOOD PRESSURE
     Route: 065
     Dates: start: 20100727
  4. ELAVIL [Concomitant]
     Indication: PAIN
     Dosage: AT HOURS OF SLEEP
     Route: 065
     Dates: start: 20100524
  5. DICLOFENAC [Concomitant]
     Indication: ARTHRALGIA
     Dosage: THREE TIMES A DAY
     Route: 065
     Dates: start: 20100526
  6. DIOVAN [Concomitant]
     Indication: HYPERTENSION
     Dosage: AT HOURS OF SLEEP
     Route: 065
     Dates: start: 20110520
  7. MAXALT [Concomitant]
     Indication: MIGRAINE
     Dosage: AS NECESSARY
     Route: 065
     Dates: start: 20110104
  8. PREVACID [Concomitant]
     Indication: GASTRIC DISORDER
     Route: 065
     Dates: start: 20100526
  9. TRAMADOL HYDROCHLORIDE/ACETAMINOPHEN [Suspect]
     Dosage: 325/37.5 MG 4-6 HOUR AS NEEDED
     Route: 048
     Dates: start: 20120501, end: 20120620

REACTIONS (1)
  - URGE INCONTINENCE [None]
